FAERS Safety Report 16464485 (Version 1)
Quarter: 2019Q2

REPORT INFORMATION
  Report Type: Spontaneous
  Country: AT (occurrence: AT)
  Receive Date: 20190621
  Receipt Date: 20190621
  Transmission Date: 20190711
  Serious: No
  Sender: FDA-Public Use
  Company Number: AT-EMD SERONO-9095996

PATIENT
  Sex: Female

DRUGS (1)
  1. MAVENCLAD [Suspect]
     Active Substance: CLADRIBINE
     Indication: RELAPSING MULTIPLE SCLEROSIS
     Dates: start: 201807

REACTIONS (2)
  - Hepatic enzyme increased [Recovered/Resolved]
  - Gastrointestinal viral infection [Recovered/Resolved]
